FAERS Safety Report 8017878-5 (Version None)
Quarter: 2012Q1

REPORT INFORMATION
  Report Type: 
  Country: None (occurrence: None)
  Receive Date: 20120103
  Receipt Date: 20111222
  Transmission Date: 20120608
  Serious: Yes (Other)
  Sender: FDA-Public Use
  Company Number: FR-JNJFOC-20111209946

PATIENT
  Age: 68 Year
  Sex: Female

DRUGS (4)
  1. DIAMICRON [Concomitant]
  2. REMICADE [Suspect]
     Indication: SARCOIDOSIS
     Route: 042
     Dates: start: 20110205
  3. REMICADE [Suspect]
     Dosage: 9 INFUSIONS ON UNSPECIFIED DATES
     Route: 042
  4. REMICADE [Suspect]
     Route: 042
     Dates: start: 20110520

REACTIONS (1)
  - ADENOCARCINOMA [None]
